FAERS Safety Report 5992155-2 (Version None)
Quarter: 2008Q4

REPORT INFORMATION
  Report Type: 
  Country: None (occurrence: None)
  Receive Date: 20081202
  Receipt Date: 20071024
  Transmission Date: 20090506
  Serious: Yes (Other)
  Sender: FDA-Public Use
  Company Number: WAES 0706USA00825

PATIENT
  Age: 51 Year
  Sex: Female

DRUGS (1)
  1. FOSAMAX [Suspect]
     Indication: OSTEOPENIA
     Dosage: 70 MG/PO
     Route: 048
     Dates: start: 20051001, end: 20060601

REACTIONS (3)
  - ANXIETY [None]
  - OSTEONECROSIS [None]
  - RESORPTION BONE INCREASED [None]
